FAERS Safety Report 14910928 (Version 2)
Quarter: 2018Q3

REPORT INFORMATION
  Report Type: Report from Study
  Country: US (occurrence: US)
  Receive Date: 20180517
  Receipt Date: 20180710
  Transmission Date: 20181010
  Serious: Yes (Disabling, Other)
  Sender: FDA-Public Use
  Company Number: US-REGENERON PHARMACEUTICALS, INC.-2018-23829

PATIENT

DRUGS (5)
  1. EYLEA [Suspect]
     Active Substance: AFLIBERCEPT
     Dosage: 2 MG, THIRD DOSE, OD
     Route: 031
     Dates: start: 20180130, end: 20180130
  2. EYLEA [Suspect]
     Active Substance: AFLIBERCEPT
     Indication: CHOROIDAL NEOVASCULARISATION
     Dosage: 2MG, SECOND DOSE, OD
     Route: 031
     Dates: start: 20171115, end: 20171115
  3. MOTRIN [Concomitant]
     Active Substance: IBUPROFEN
     Indication: PRODUCT USED FOR UNKNOWN INDICATION
     Dosage: UNK, AS NECESSARY
  4. EYLEA [Suspect]
     Active Substance: AFLIBERCEPT
     Indication: NEOVASCULAR AGE-RELATED MACULAR DEGENERATION
     Dosage: 2 MG/0.05ML, OD, EVERY 4?5 WEEKS
     Route: 031
     Dates: start: 20171011
  5. EYLEA [Suspect]
     Active Substance: AFLIBERCEPT
     Dosage: 2MG, LAST DOSE PRIOR TO THE EVENT (FOURTH DOSE), OD
     Route: 031
     Dates: start: 20180314, end: 20180314

REACTIONS (10)
  - Vitreous floaters [Unknown]
  - Epistaxis [Unknown]
  - Discomfort [Unknown]
  - Lacrimation increased [Unknown]
  - Blindness unilateral [Unknown]
  - Eye irritation [Unknown]
  - Arthralgia [Unknown]
  - Eye pain [Recovered/Resolved]
  - Rheumatoid arthritis [Unknown]
  - Refusal of treatment by patient [Unknown]

NARRATIVE: CASE EVENT DATE: 20180314
